FAERS Safety Report 20280425 (Version 1)
Quarter: 2022Q1

REPORT INFORMATION
  Report Type: Report from Study
  Country: DK (occurrence: DK)
  Receive Date: 20220103
  Receipt Date: 20220103
  Transmission Date: 20220423
  Serious: Yes (Hospitalization, Other)
  Sender: FDA-Public Use
  Company Number: None

PATIENT
  Age: 81 Year
  Sex: Female
  Weight: 50 kg

DRUGS (16)
  1. ALENDRONATE [Suspect]
     Active Substance: ALENDRONATE SODIUM
     Indication: Osteoporosis
     Dosage: 70 MILLIGRAM
     Route: 048
  2. TRASTUZUMAB [Suspect]
     Active Substance: TRASTUZUMAB
     Indication: Metastases to lung
     Dosage: UNK
     Route: 065
  3. CAPECITABINE [Suspect]
     Active Substance: CAPECITABINE
     Indication: Chronic lymphocytic leukaemia
     Dosage: UNK
     Route: 065
  4. CARBOPLATIN [Suspect]
     Active Substance: CARBOPLATIN
     Indication: Chronic lymphocytic leukaemia
     Dosage: UNK
     Route: 065
  5. VINORELBINE [Suspect]
     Active Substance: VINORELBINE TARTRATE
     Indication: Chronic lymphocytic leukaemia
     Dosage: UNK
     Route: 065
  6. CISPLATIN [Suspect]
     Active Substance: CISPLATIN
     Indication: Chronic lymphocytic leukaemia
     Dosage: UNK
     Route: 065
  7. ONIVYDE [Suspect]
     Active Substance: IRINOTECAN HYDROCHLORIDE
     Indication: Chronic lymphocytic leukaemia
     Dosage: NOT REPORTED
     Route: 065
  8. THALIDOMIDE [Suspect]
     Active Substance: THALIDOMIDE
     Indication: Chronic lymphocytic leukaemia
     Dosage: UNK
     Route: 065
  9. GLIVEC [Suspect]
     Active Substance: IMATINIB MESYLATE
     Indication: Chronic lymphocytic leukaemia
     Dosage: 100 MG-400 MG 3 OR 1 TABLET
     Route: 048
     Dates: start: 20141028
  10. CYCLOPHOSPHAMIDE [Suspect]
     Active Substance: CYCLOPHOSPHAMIDE
     Indication: Chronic lymphocytic leukaemia
     Dosage: UNK
     Route: 065
  11. XGEVA [Suspect]
     Active Substance: DENOSUMAB
     Indication: Chronic lymphocytic leukaemia
     Dosage: 120 MILLIGRAM
     Route: 058
  12. XGEVA [Suspect]
     Active Substance: DENOSUMAB
     Indication: Metastases to bone
  13. HERCEPTIN [Suspect]
     Active Substance: TRASTUZUMAB
     Indication: Chronic lymphocytic leukaemia
     Dosage: UNK
     Route: 065
  14. TEMOZOLOMIDE [Suspect]
     Active Substance: TEMOZOLOMIDE
     Indication: Chronic lymphocytic leukaemia
     Dosage: UNK
     Route: 065
  15. FOSAMAX [Suspect]
     Active Substance: ALENDRONATE SODIUM
     Indication: Chronic lymphocytic leukaemia
     Dosage: 70 MILLIGRAM
     Route: 048
  16. ALIMTA [Suspect]
     Active Substance: PEMETREXED DISODIUM
     Indication: Chronic lymphocytic leukaemia
     Dosage: UNK
     Route: 065

REACTIONS (3)
  - Jaw operation [Unknown]
  - Osteonecrosis of jaw [Recovered/Resolved]
  - Off label use [Recovered/Resolved]

NARRATIVE: CASE EVENT DATE: 20150101
